FAERS Safety Report 22697864 (Version 4)
Quarter: 2023Q4

REPORT INFORMATION
  Report Type: Spontaneous
  Country: CN (occurrence: CN)
  Receive Date: 20230712
  Receipt Date: 20231220
  Transmission Date: 20240110
  Serious: Yes (Hospitalization)
  Sender: FDA-Public Use
  Company Number: CN-Merck Healthcare KGaA-2023458936

PATIENT
  Age: 47 Year
  Sex: Male
  Weight: 79 kg

DRUGS (8)
  1. ERBITUX [Suspect]
     Active Substance: CETUXIMAB
     Indication: Colorectal cancer metastatic
     Dosage: 400 MG/M2, UNK
     Route: 042
     Dates: start: 20230607, end: 20230607
  2. ERBITUX [Suspect]
     Active Substance: CETUXIMAB
     Dosage: 250 MG/M2, WEEKLY (1/W)
     Route: 042
  3. ERBITUX [Suspect]
     Active Substance: CETUXIMAB
     Dosage: 480 MG/M2, WEEKLY (1/W)
     Route: 042
     Dates: start: 20230627
  4. OXALIPLATIN [Suspect]
     Active Substance: OXALIPLATIN
     Indication: Colorectal cancer metastatic
     Dosage: 85 MG/M2, 2/M
     Route: 042
     Dates: start: 20230607
  5. FLUOROURACIL [Suspect]
     Active Substance: FLUOROURACIL
     Indication: Colorectal cancer metastatic
     Dosage: 400 MG/M2, 2/M
     Route: 042
     Dates: start: 20230607, end: 20230609
  6. FLUOROURACIL [Suspect]
     Active Substance: FLUOROURACIL
     Dosage: 2400 MG/M2, 2/M
     Route: 040
     Dates: start: 20230607, end: 20230609
  7. LEUCOVORIN [Suspect]
     Active Substance: LEUCOVORIN\LEUCOVORIN CALCIUM
     Indication: Colorectal cancer metastatic
     Dosage: 400 MG/M2,ON DAY 1,15,19 OF EACH 6 WEEK CYCLE
     Route: 042
     Dates: start: 20230607
  8. BICYCLOL [Concomitant]
     Active Substance: BICYCLOL
     Indication: Product used for unknown indication

REACTIONS (3)
  - Hepatic function abnormal [Recovered/Resolved]
  - Condition aggravated [Recovered/Resolved]
  - Rectal haemorrhage [Recovered/Resolved]

NARRATIVE: CASE EVENT DATE: 20230611
